FAERS Safety Report 6735913-9 (Version None)
Quarter: 2010Q2

REPORT INFORMATION
  Report Type: 
  Country: None (occurrence: None)
  Receive Date: 20100521
  Receipt Date: 20100514
  Transmission Date: 20101027
  Serious: Yes (Other)
  Sender: FDA-Public Use
  Company Number: B0497947A

PATIENT
  Sex: Male
  Weight: 85 kg

DRUGS (7)
  1. PAXIL [Suspect]
     Indication: DEPRESSION
     Dosage: 50MG PER DAY
     Route: 048
     Dates: start: 20020101
  2. MEILAX [Concomitant]
     Indication: PANIC DISORDER
     Route: 048
     Dates: end: 20071224
  3. ANAFRANIL [Concomitant]
     Indication: DEPRESSION
     Dosage: 40MG PER DAY
     Route: 048
     Dates: start: 20070821, end: 20071126
  4. TETRAMIDE [Concomitant]
     Indication: DEPRESSION
     Dosage: 15MG PER DAY
     Route: 048
     Dates: end: 20071203
  5. EPADEL S [Concomitant]
     Route: 048
     Dates: start: 20071120
  6. TOLEDOMIN [Concomitant]
     Indication: DEPRESSION
     Route: 048
     Dates: start: 20071127, end: 20080122
  7. LORAZEPAM [Concomitant]
     Indication: PANIC DISORDER
     Route: 048
     Dates: start: 20071211

REACTIONS (6)
  - BLOOD CHOLESTEROL INCREASED [None]
  - BLOOD TRIGLYCERIDES INCREASED [None]
  - HEPATIC STEATOSIS [None]
  - HYPERLIPIDAEMIA [None]
  - SOMNOLENCE [None]
  - URINARY RETENTION [None]
